FAERS Safety Report 6535603-1 (Version None)
Quarter: 2010Q1

REPORT INFORMATION
  Report Type: 
  Country: None (occurrence: None)
  Receive Date: 20100113
  Receipt Date: 20091228
  Transmission Date: 20100710
  Serious: Yes (Hospitalization)
  Sender: FDA-Public Use
  Company Number: FR-BAYER-201010641GPV

PATIENT
  Age: 76 Year
  Sex: Female

DRUGS (3)
  1. CIFLOX [Suspect]
     Indication: HYPERTHERMIA
     Route: 042
     Dates: start: 20090606, end: 20090608
  2. TAZOCILLINE [Suspect]
     Indication: DRUG USE FOR UNKNOWN INDICATION
     Route: 042
     Dates: start: 20090525, end: 20090608
  3. TRIFLUCAN [Suspect]
     Indication: DRUG USE FOR UNKNOWN INDICATION
     Route: 042
     Dates: start: 20090518, end: 20090610

REACTIONS (6)
  - BLOOD AMYLASE INCREASED [None]
  - CHOLESTASIS [None]
  - LIPASE INCREASED [None]
  - PANCREATITIS [None]
  - RASH MACULO-PAPULAR [None]
  - TRANSAMINASES INCREASED [None]
